FAERS Safety Report 9277335 (Version 2)
Quarter: 2013Q2

REPORT INFORMATION
  Report Type: Spontaneous
  Country: IT (occurrence: IT)
  Receive Date: 20130508
  Receipt Date: 20130508
  Transmission Date: 20140414
  Serious: Yes (Other)
  Sender: FDA-Public Use
  Company Number: IT-009507513-1206USA02363

PATIENT
  Age: 67 Year
  Sex: Female

DRUGS (1)
  1. ADRONAT 70MG COMPRESSE [Suspect]
     Indication: OSTEOPOROSIS
     Dosage: 70 MG, QW
     Route: 048
     Dates: start: 20090101, end: 20120326

REACTIONS (2)
  - Osteolysis [Recovering/Resolving]
  - Pain in jaw [Recovering/Resolving]
